FAERS Safety Report 4646739-4 (Version None)
Quarter: 2005Q2

REPORT INFORMATION
  Report Type: 
  Country: None (occurrence: None)
  Receive Date: 20050427
  Receipt Date: 20050419
  Transmission Date: 20051028
  Serious: Yes (Death)
  Sender: FDA-Public Use
  Company Number: GB-GLAXOSMITHKLINE-B0379273A

PATIENT
  Sex: Male

DRUGS (12)
  1. SERETIDE [Suspect]
     Route: 065
  2. SALBUTAMOL [Suspect]
     Route: 065
  3. SPIRIVA [Suspect]
     Route: 065
  4. COMBIVENT [Suspect]
     Route: 055
  5. CITALOPRAM HYDROBROMIDE [Suspect]
     Route: 065
  6. LOSARTAN POTASSIUM [Suspect]
     Route: 065
  7. MOMETASONE FUROATE [Suspect]
     Route: 065
  8. NYSTATIN [Suspect]
     Route: 065
  9. OXYGEN [Suspect]
     Route: 065
  10. PHOLCODINE [Suspect]
     Route: 065
  11. XALATAN [Suspect]
     Route: 065
  12. ZOPICLONE [Suspect]
     Route: 065

REACTIONS (1)
  - CHRONIC OBSTRUCTIVE AIRWAYS DISEASE EXACERBATED [None]
